FAERS Safety Report 8516751-3 (Version None)
Quarter: 2012Q3

REPORT INFORMATION
  Report Type: 
  Country: None (occurrence: None)
  Receive Date: 20120706
  Receipt Date: 20120622
  Transmission Date: 20120928
  Serious: Yes (Congenital Anomaly, Other)
  Sender: FDA-Public Use
  Company Number: GER/GER/12/0024783

PATIENT
  Age: 0 Year
  Sex: Male
  Weight: 2.24 kg

DRUGS (8)
  1. PREDNISONE TAB [Concomitant]
  2. RITUXIMAB (RITUXIMAB) [Suspect]
     Indication: PRODUCT USED FOR UNKNOWN INDICATION
     Dosage: 800 MG, 1 D, TRANSPLACENTAL
     Route: 064
  3. PREDNISONE TAB [Concomitant]
  4. FORTECORTIN 40 MG (DEXAMETHASONE) [Concomitant]
  5. OMEPRAZOLE [Suspect]
     Indication: PRODUCT USED FOR UNKNOWN INDICATION
     Dosage: 20 MG, 1 IN 1 D, TRANSPLACENTAL
     Route: 064
  6. FOLSAURE (FOLIC ACID) [Concomitant]
  7. INTRATECT (IMMUNOGLOBULIN G HUMAN) [Suspect]
     Indication: PRODUCT USED FOR UNKNOWN INDICATION
     Dosage: TRANSPLACENTAL
     Route: 064
     Dates: start: 20100312, end: 20100314
  8. PROTAPHANE (INSULIN HUMAN INJECTION, ISOPHANE) [Concomitant]

REACTIONS (11)
  - THROMBOCYTOPENIA [None]
  - VENTRICULAR SEPTAL DEFECT [None]
  - B-LYMPHOCYTE COUNT DECREASED [None]
  - MACROSOMIA [None]
  - IMMUNOGLOBULINS DECREASED [None]
  - PREMATURE BABY [None]
  - MATERNAL DRUGS AFFECTING FOETUS [None]
  - BREECH PRESENTATION [None]
  - CAESAREAN SECTION [None]
  - NEONATAL RESPIRATORY DISTRESS SYNDROME [None]
  - CONDITION AGGRAVATED [None]
